FAERS Safety Report 8276228-X (Version None)
Quarter: 2012Q2

REPORT INFORMATION
  Report Type: 
  Country: None (occurrence: None)
  Receive Date: 20120409
  Receipt Date: 20120404
  Transmission Date: 20120825
  Serious: Yes (Death, Hospitalization, Other)
  Sender: FDA-Public Use
  Company Number: 2012SP018147

PATIENT
  Age: 45 Year
  Sex: Female

DRUGS (4)
  1. RIBAVIRIN [Suspect]
     Indication: HEPATITIS C
  2. NEUPOGEN [Concomitant]
  3. VICTRELIS [Suspect]
     Indication: HEPATITIS C
  4. PEG-INTRON [Suspect]
     Indication: HEPATITIS C

REACTIONS (1)
  - LIFE SUPPORT [None]
